FAERS Safety Report 21966731 (Version 1)
Quarter: 2023Q1

REPORT INFORMATION
  Report Type: Spontaneous
  Country: US (occurrence: US)
  Receive Date: 20230208
  Receipt Date: 20230208
  Transmission Date: 20230418
  Serious: No
  Sender: FDA-Public Use
  Company Number: US-SA-SAC20230208000141

PATIENT
  Sex: Female
  Weight: 64.853 kg

DRUGS (8)
  1. DUPIXENT [Suspect]
     Active Substance: DUPILUMAB
     Indication: Dermatitis atopic
     Dosage: 300 MG, QOW
     Route: 058
     Dates: start: 20221020
  2. LUTEIN [XANTOFYL;ZEAXANTHIN] [Concomitant]
  3. VITAMIN D3 [Concomitant]
     Active Substance: CHOLECALCIFEROL
  4. VITAMIN C [Concomitant]
     Active Substance: ASCORBIC ACID
  5. FISH OIL [Concomitant]
     Active Substance: FISH OIL
  6. LIPITOR [Concomitant]
     Active Substance: ATORVASTATIN CALCIUM
  7. FOSAMAX [Concomitant]
     Active Substance: ALENDRONATE SODIUM
  8. COENZYME Q10 [Concomitant]
     Active Substance: DIETARY SUPPLEMENT\UBIDECARENONE

REACTIONS (3)
  - Injection site pain [Unknown]
  - Myalgia [Unknown]
  - Pain [Unknown]
